FAERS Safety Report 9397870 (Version 2)
Quarter: 2013Q3

REPORT INFORMATION
  Report Type: Spontaneous
  Country: CH (occurrence: CH)
  Receive Date: 20130712
  Receipt Date: 20130829
  Transmission Date: 20140515
  Serious: Yes (Other)
  Sender: FDA-Public Use
  Company Number: PHHY2013CH074057

PATIENT
  Sex: Male

DRUGS (1)
  1. GILENYA [Suspect]
     Route: 048

REACTIONS (4)
  - Brain stem syndrome [Unknown]
  - Multiple sclerosis relapse [Recovered/Resolved]
  - Nystagmus [Recovered/Resolved]
  - Drug ineffective [Unknown]
